FAERS Safety Report 16787355 (Version 3)
Quarter: 2019Q4

REPORT INFORMATION
  Report Type: Report from Study
  Country: TR (occurrence: TR)
  Receive Date: 20190909
  Receipt Date: 20191101
  Transmission Date: 20200122
  Serious: Yes (Death, Life-Threatening, Hospitalization)
  Sender: FDA-Public Use
  Company Number: TR-ASTRAZENECA-2019SE35538

PATIENT
  Age: 26298 Day
  Sex: Male

DRUGS (23)
  1. DURVALUMAB. [Suspect]
     Active Substance: DURVALUMAB
     Indication: NON-SMALL CELL LUNG CANCER
     Route: 042
     Dates: start: 20181228, end: 20181228
  2. METILPREDNIZOLON SODYUM SUKSINAT [Suspect]
     Active Substance: METHYLPREDNISOLONE SODIUM SUCCINATE
     Indication: MYOCARDITIS
     Route: 042
     Dates: start: 20190301, end: 20190308
  3. METILPREDNIZOLON SODYUM SUKSINAT [Suspect]
     Active Substance: METHYLPREDNISOLONE SODIUM SUCCINATE
     Indication: MYOCARDITIS
     Route: 042
     Dates: start: 20190319, end: 20190408
  4. REMICADE [Concomitant]
     Active Substance: INFLIXIMAB
     Indication: MYOCARDITIS
     Route: 042
     Dates: start: 20190319, end: 20190401
  5. TAZOCIN [Concomitant]
     Active Substance: PIPERACILLIN SODIUM\TAZOBACTAM SODIUM
     Indication: PNEUMONIA
     Route: 042
     Dates: start: 20190403, end: 20190415
  6. LASIX [Concomitant]
     Active Substance: FUROSEMIDE
     Indication: HYPERTENSION
     Route: 042
     Dates: start: 20190411
  7. BELOC ZOK [Concomitant]
     Active Substance: METOPROLOL SUCCINATE
     Indication: HYPERTENSION
     Route: 048
     Dates: start: 20190411
  8. METILPREDNIZOLON SODYUM SUKSINAT [Suspect]
     Active Substance: METHYLPREDNISOLONE SODIUM SUCCINATE
     Indication: MYOCARDITIS
     Route: 042
     Dates: start: 20190311, end: 20190313
  9. VENTOFOR-COMBI [Concomitant]
     Indication: CHRONIC OBSTRUCTIVE PULMONARY DISEASE
     Dosage: 400.0UG AS REQUIRED
     Route: 055
     Dates: start: 2010
  10. BACTRIM [Concomitant]
     Active Substance: SULFAMETHOXAZOLE\TRIMETHOPRIM
     Indication: MYOCARDITIS
     Dosage: 800 MG, BID 4 TIMES PER WEEK
     Route: 042
     Dates: start: 20190326
  11. METILPREDNIZOLON SODYUM SUKSINAT [Suspect]
     Active Substance: METHYLPREDNISOLONE SODIUM SUCCINATE
     Indication: MYOCARDITIS
     Route: 042
     Dates: start: 20190308, end: 20190311
  12. METILPREDNIZOLON SODYUM SUKSINAT [Suspect]
     Active Substance: METHYLPREDNISOLONE SODIUM SUCCINATE
     Indication: MYOCARDITIS
     Route: 042
     Dates: start: 20190314, end: 20190318
  13. INVANZ [Concomitant]
     Active Substance: ERTAPENEM SODIUM
     Indication: PNEUMONIA
     Route: 042
     Dates: start: 20190309, end: 20190323
  14. DURVALUMAB. [Suspect]
     Active Substance: DURVALUMAB
     Indication: NON-SMALL CELL LUNG CANCER
     Route: 042
     Dates: start: 20190125, end: 20190125
  15. METILPREDNIZOLON SODYUM SUKSINAT [Suspect]
     Active Substance: METHYLPREDNISOLONE SODIUM SUCCINATE
     Indication: MYOCARDITIS
     Route: 042
     Dates: start: 20190417
  16. TAZOCIN [Concomitant]
     Active Substance: PIPERACILLIN SODIUM\TAZOBACTAM SODIUM
     Indication: PNEUMONIA
     Route: 042
     Dates: start: 2010
  17. DURVALUMAB. [Suspect]
     Active Substance: DURVALUMAB
     Indication: NON-SMALL CELL LUNG CANCER
     Route: 042
     Dates: start: 20190221, end: 20190221
  18. TAZOCIN [Concomitant]
     Active Substance: PIPERACILLIN SODIUM\TAZOBACTAM SODIUM
     Indication: PNEUMONIA
     Route: 042
     Dates: start: 20190427
  19. VALTREX [Concomitant]
     Active Substance: VALACYCLOVIR HYDROCHLORIDE
     Indication: MYOCARDITIS
     Route: 048
     Dates: start: 20190326
  20. REMICADE [Concomitant]
     Active Substance: INFLIXIMAB
     Indication: MYOCARDITIS
     Route: 042
     Dates: start: 20190402, end: 20190401
  21. HUMAN ALBUMIN [Concomitant]
     Active Substance: ALBUMIN HUMAN
     Indication: HYPERGLYCAEMIA
     Route: 042
     Dates: start: 20190409
  22. METILPREDNIZOLON SODYUM SUKSINAT [Suspect]
     Active Substance: METHYLPREDNISOLONE SODIUM SUCCINATE
     Indication: MYOCARDITIS
     Route: 042
     Dates: start: 20190409, end: 20190416
  23. BACTRIM [Concomitant]
     Active Substance: SULFAMETHOXAZOLE\TRIMETHOPRIM
     Indication: MYOCARDITIS
     Dosage: 400 MG, 3X4
     Route: 042
     Dates: start: 20190306, end: 20190319

REACTIONS (4)
  - Myocarditis [Fatal]
  - Pneumonia [Recovered/Resolved]
  - Pneumonia [Recovered/Resolved]
  - Sepsis [Fatal]

NARRATIVE: CASE EVENT DATE: 20190301
